FAERS Safety Report 15751142 (Version 1)
Quarter: 2018Q4

REPORT INFORMATION
  Report Type: Spontaneous
  Country: US (occurrence: US)
  Receive Date: 20181221
  Receipt Date: 20181221
  Transmission Date: 20190205
  Serious: No
  Sender: FDA-Public Use
  Company Number: US-THERAPEUTICSMD-2018TMD00187

PATIENT
  Age: 59 Year
  Sex: Female
  Weight: 58.96 kg

DRUGS (7)
  1. JARDIANCE [Concomitant]
     Active Substance: EMPAGLIFLOZIN
     Dosage: 25 MG, 1X/DAY
  2. IMVEXXY [Suspect]
     Active Substance: ESTRADIOL
     Indication: VULVOVAGINAL DRYNESS
     Dosage: 10 ?G, 2X/WEEK EARLY IN THE MORNING
     Route: 067
     Dates: start: 201808, end: 20180917
  3. MORPHINE [Concomitant]
     Active Substance: MORPHINE
  4. OXYCONTIN [Concomitant]
     Active Substance: OXYCODONE HYDROCHLORIDE
  5. IMVEXXY [Suspect]
     Active Substance: ESTRADIOL
     Indication: DYSPAREUNIA
     Dosage: 10 ?G, 1X/DAY EARLY IN THE MORNING
     Route: 067
     Dates: start: 201808, end: 201808
  6. LISINOPRIL. [Concomitant]
     Active Substance: LISINOPRIL
     Dosage: 10 MG, 1X/DAY
  7. ATORVASTATIN [Concomitant]
     Active Substance: ATORVASTATIN
     Dosage: UNK MG

REACTIONS (7)
  - Vulvovaginal dryness [Recovered/Resolved]
  - Dysuria [Recovered/Resolved]
  - Vaginal discharge [Recovered/Resolved]
  - Dyspareunia [Recovering/Resolving]
  - Vaginal disorder [Recovered/Resolved]
  - Therapeutic response decreased [Recovered/Resolved]
  - Vulvovaginal burning sensation [Recovered/Resolved]

NARRATIVE: CASE EVENT DATE: 201809
